FAERS Safety Report 8951672 (Version 1)
Quarter: 2012Q4

REPORT INFORMATION
  Report Type: 
  Country: US (occurrence: US)
  Receive Date: 20121204
  Receipt Date: 20121204
  Transmission Date: 20130627
  Serious: Yes (Death)
  Sender: FDA-Public Use
  Company Number: CHPA2012US024568

PATIENT
  Age: 73 Year
  Sex: Male

DRUGS (1)
  1. MAALOX ADV MAXIMUM STRENGTH ANTACID/ANTIGAS [Suspect]
     Indication: ABDOMINAL DISCOMFORT
     Dosage: Unk, Unk
     Route: 048

REACTIONS (2)
  - Death [Fatal]
  - Cardiac disorder [Unknown]
